FAERS Safety Report 17236488 (Version 1)
Quarter: 2020Q1

REPORT INFORMATION
  Report Type: Spontaneous
  Country: GB (occurrence: GB)
  Receive Date: 20200106
  Receipt Date: 20200106
  Transmission Date: 20200409
  Serious: Yes (Other)
  Sender: FDA-Public Use
  Company Number: GB-TEVA-2019-GB-1105229

PATIENT
  Age: 25 Year
  Sex: Male

DRUGS (4)
  1. IMIPRAMINE [Suspect]
     Active Substance: IMIPRAMINE
     Indication: RETROGRADE EJACULATION
     Dosage: 25 MILLIGRAM DAILY; AT NIGHT
     Route: 065
  2. QUETIAPINE. [Suspect]
     Active Substance: QUETIAPINE
     Indication: PSYCHOTIC DISORDER
     Dosage: 600 MILLIGRAM DAILY; AT NIGHT
     Route: 065
  3. QUETIAPINE. [Suspect]
     Active Substance: QUETIAPINE
     Indication: PSYCHOTIC DISORDER
     Dosage: 200 MILLIGRAM DAILY; AT NIGHT;
     Route: 065
  4. IMIPRAMINE [Suspect]
     Active Substance: IMIPRAMINE
     Indication: RETROGRADE EJACULATION
     Dosage: 50 MILLIGRAM DAILY; AT NIGHT
     Route: 065

REACTIONS (2)
  - Retrograde ejaculation [Recovered/Resolved]
  - Constipation [Recovered/Resolved]
